FAERS Safety Report 5922789-2 (Version None)
Quarter: 2008Q4

REPORT INFORMATION
  Report Type: 
  Country: None (occurrence: None)
  Receive Date: 20081017
  Receipt Date: 20081015
  Transmission Date: 20090506
  Serious: Yes (Disabling)
  Sender: FDA-Public Use
  Company Number: CA-GENENTECH-269792

PATIENT
  Age: 39 Year
  Sex: Male

DRUGS (5)
  1. EFALIZUMAB [Suspect]
     Indication: PSORIASIS
     Dosage: UNKNOWN
  2. BETADERM (CANADA) [Concomitant]
     Indication: PSORIASIS
     Dosage: UNK
     Route: 061
     Dates: start: 20080303
  3. DOVONEX [Concomitant]
     Indication: PSORIASIS
     Dosage: UNK
     Route: 061
     Dates: start: 20030101
  4. ARISTOCORT [Concomitant]
     Indication: PSORIASIS
     Dosage: UNK
     Route: 061
     Dates: start: 20070101
  5. BETAMETHASONE DIPROPIONATE LOTION [Concomitant]
     Indication: PSORIASIS
     Dosage: UNK
     Dates: start: 19930101

REACTIONS (2)
  - BACK PAIN [None]
  - CHEST PAIN [None]
